FAERS Safety Report 24386124 (Version 1)
Quarter: 2024Q4

REPORT INFORMATION
  Report Type: Report from Study
  Country: CA (occurrence: CA)
  Receive Date: 20241001
  Receipt Date: 20241001
  Transmission Date: 20250114
  Serious: Yes (Hospitalization)
  Sender: BOEHRINGER INGELHEIM
  Company Number: CA-BoehringerIngelheim-2024-BI-025070

PATIENT
  Age: 83 Year
  Sex: Male

DRUGS (1)
  1. OFEV [Suspect]
     Active Substance: NINTEDANIB
     Indication: Idiopathic pulmonary fibrosis
     Route: 048
     Dates: start: 20240423, end: 20240910

REACTIONS (12)
  - Intestinal haemorrhage [Unknown]
  - Hypoxia [Not Recovered/Not Resolved]
  - Weight increased [Recovering/Resolving]
  - Fluid retention [Recovering/Resolving]
  - Blister [Recovering/Resolving]
  - Fatigue [Recovering/Resolving]
  - Dizziness [Unknown]
  - Sinonasal obstruction [Unknown]
  - Constipation [Unknown]
  - Nausea [Recovered/Resolved]
  - Peripheral swelling [Recovering/Resolving]
  - Blister rupture [Recovering/Resolving]

NARRATIVE: CASE EVENT DATE: 20240524
